FAERS Safety Report 4852775-5 (Version None)
Quarter: 2005Q4

REPORT INFORMATION
  Report Type: 
  Country: None (occurrence: None)
  Receive Date: 20051125
  Receipt Date: 20041004
  Transmission Date: 20060501
  Serious: Yes (Other)
  Sender: FDA-Public Use
  Company Number: 800097

PATIENT
  Age: 56 Year
  Sex: Male
  Weight: 99.7913 kg

DRUGS (7)
  1. DIANEAL [Suspect]
     Indication: PERITONEAL DIALYSIS
     Dosage: 20 L; EVERY DAY; IP
     Route: 033
     Dates: start: 20030301, end: 20040324
  2. ZOCOR [Concomitant]
  3. LOSARTAN [Concomitant]
  4. OMEPRAZOLE [Concomitant]
  5. COLCHICINE [Concomitant]
  6. DULCOLAX [Concomitant]
  7. SEVELAMER [Concomitant]

REACTIONS (3)
  - ASPERGILLOSIS [None]
  - CATHETER RELATED INFECTION [None]
  - PERITONITIS [None]
